FAERS Safety Report 15575652 (Version 1)
Quarter: 2018Q4

REPORT INFORMATION
  Report Type: Report from Study
  Country: BE (occurrence: BE)
  Receive Date: 20181101
  Receipt Date: 20181101
  Transmission Date: 20190205
  Serious: Yes (Hospitalization, Other)
  Sender: FDA-Public Use
  Company Number: BE-BAYER-2018-089472

PATIENT
  Age: 61 Year
  Sex: Male

DRUGS (20)
  1. ITRACONAZOLE. [Concomitant]
     Active Substance: ITRACONAZOLE
     Indication: FUNGAL INFECTION
     Dosage: 100 MG/D, BID
     Dates: start: 20180614
  2. ALDACTONE [Concomitant]
     Active Substance: SPIRONOLACTONE
  3. JARDIANCE [Concomitant]
     Active Substance: EMPAGLIFLOZIN
     Dosage: UNK
     Dates: end: 20180621
  4. LYRICA [Concomitant]
     Active Substance: PREGABALIN
     Dosage: DAILY DOSE 75 MG
     Dates: start: 20180517, end: 20180529
  5. TAMSULOSIN HYDROCHLORIDE. [Concomitant]
     Active Substance: TAMSULOSIN HYDROCHLORIDE
  6. EFFORTIL [Concomitant]
     Active Substance: ETILEFRINE HYDROCHLORIDE
     Indication: HYPOTENSION
     Dosage: UNK
     Dates: start: 20180620
  7. CARVEDILOL. [Concomitant]
     Active Substance: CARVEDILOL
  8. STIVARGA [Suspect]
     Active Substance: REGORAFENIB
     Indication: HEPATOCELLULAR CARCINOMA
     Dosage: 80 MG DAILY
     Dates: start: 20180509, end: 20181024
  9. NEXAVAR [Concomitant]
     Active Substance: SORAFENIB
     Dosage: UNK
     Dates: start: 20171214, end: 20180321
  10. MS CONTIN [Concomitant]
     Active Substance: MORPHINE SULFATE
     Indication: PAIN
     Dosage: UNK
     Dates: start: 20180517
  11. L THYROXINE [Concomitant]
     Active Substance: LEVOTHYROXINE SODIUM
  12. RINOMEX [Concomitant]
  13. ATORVASTATIN [Concomitant]
     Active Substance: ATORVASTATIN
     Dosage: UNK
     Dates: end: 20180302
  14. MONURIL [Concomitant]
     Active Substance: FOSFOMYCIN TROMETHAMINE
     Indication: URINARY TRACT INFECTION BACTERIAL
     Dosage: UNK
     Dates: start: 20180613, end: 20180613
  15. GLUCOPHAGE [Concomitant]
     Active Substance: METFORMIN HYDROCHLORIDE
     Dosage: UNK
     Dates: end: 20180621
  16. RINOMAX [CARBINOXAMINE MALEATE,PSEUDOEPHEDRINE] [Concomitant]
  17. STIVARGA [Suspect]
     Active Substance: REGORAFENIB
     Indication: HEPATOCELLULAR CARCINOMA
     Dosage: 80 MG DAILY
     Dates: start: 20180322, end: 20180504
  18. OMEPRAZOLE. [Concomitant]
     Active Substance: OMEPRAZOLE
  19. IBUPROFEN. [Concomitant]
     Active Substance: IBUPROFEN
     Dosage: UNK
     Dates: start: 201808
  20. BURINEX [Concomitant]
     Active Substance: BUMETANIDE

REACTIONS (55)
  - Urethral stenosis [None]
  - Pollakiuria [Not Recovered/Not Resolved]
  - Palmar-plantar erythrodysaesthesia syndrome [Recovering/Resolving]
  - Fatigue [Not Recovered/Not Resolved]
  - Pyrexia [Recovered/Resolved]
  - Joint swelling [Recovering/Resolving]
  - Musculoskeletal chest pain [None]
  - Chest pain [None]
  - Dyspnoea [None]
  - Pneumonia [None]
  - Cystitis [Recovered/Resolved]
  - Abdominal pain [Recovered/Resolved]
  - Diarrhoea [Recovered/Resolved]
  - Weight decreased [Recovered/Resolved]
  - Diarrhoea [None]
  - Abnormal dreams [Not Recovered/Not Resolved]
  - Hyperchlorhydria [Not Recovered/Not Resolved]
  - Pyrexia [None]
  - Haematemesis [None]
  - Constipation [Recovered/Resolved]
  - Muscle spasms [Recovered/Resolved]
  - Abdominal pain [Not Recovered/Not Resolved]
  - Influenza like illness [Recovered/Resolved]
  - Faeces discoloured [None]
  - Night sweats [None]
  - Headache [None]
  - Haematotoxicity [None]
  - Umbilical hernia [Not Recovered/Not Resolved]
  - Wound infection [Recovered/Resolved]
  - Dysuria [Recovered/Resolved]
  - Daydreaming [Not Recovered/Not Resolved]
  - Hypotension [None]
  - Blood urine present [None]
  - Faeces discoloured [None]
  - Weight decreased [Recovering/Resolving]
  - Vision blurred [Recovered/Resolved]
  - Abdominal distension [Recovering/Resolving]
  - Joint swelling [Recovered/Resolved]
  - Abnormal dreams [None]
  - Hypoaesthesia [Recovered/Resolved]
  - Arthralgia [Recovered/Resolved]
  - Muscle spasms [Not Recovered/Not Resolved]
  - Headache [Recovering/Resolving]
  - Diarrhoea [None]
  - Hypertension [None]
  - Pyrexia [None]
  - Urinary tract infection [Recovered/Resolved]
  - Epistaxis [Not Recovered/Not Resolved]
  - Decreased appetite [Not Recovered/Not Resolved]
  - Oesophageal pain [None]
  - Cough [None]
  - Faeces discoloured [Recovered/Resolved]
  - Diarrhoea [None]
  - Disturbance in attention [Not Recovered/Not Resolved]
  - Nausea [None]

NARRATIVE: CASE EVENT DATE: 2018
